FAERS Safety Report 6147173-0 (Version None)
Quarter: 2009Q2

REPORT INFORMATION
  Report Type: 
  Country: None (occurrence: None)
  Receive Date: 20090407
  Receipt Date: 20080603
  Transmission Date: 20091009
  Serious: No
  Sender: FDA-Public Use
  Company Number: US-TYCO HEALTHCARE/MALLINCKRODT-T200800962

PATIENT

DRUGS (4)
  1. METHADOSE [Suspect]
  2. CHANTIX [Suspect]
     Indication: SMOKING CESSATION THERAPY
     Dosage: 1 MG, QD (EACH MORNING)
     Route: 048
     Dates: start: 20071101
  3. KLONOPIN [Suspect]
     Dosage: 1 MG, QD
  4. KLONOPIN [Suspect]
     Dosage: 1 MG, BID

REACTIONS (6)
  - COCCYDYNIA [None]
  - FALL [None]
  - FATIGUE [None]
  - LYMPHADENOPATHY [None]
  - NECK PAIN [None]
  - SOMNOLENCE [None]
